FAERS Safety Report 13149212 (Version 1)
Quarter: 2017Q1

REPORT INFORMATION
  Report Type: Spontaneous
  Country: TR (occurrence: TR)
  Receive Date: 20170125
  Receipt Date: 20170125
  Transmission Date: 20170428
  Serious: Yes (Other)
  Sender: FDA-Public Use
  Company Number: TR-ALKEM LABORATORIES LIMITED-TR-ALKEM-2017-00007

PATIENT
  Age: 63 Year
  Sex: Male

DRUGS (6)
  1. METHYLPREDNISOLONE. [Concomitant]
     Active Substance: METHYLPREDNISOLONE
     Indication: TAKAYASU^S ARTERITIS
     Dosage: 20 MG, ONE IN 48 HOURS
     Route: 042
  2. BENZYLPENICILLIN SODIUM [Concomitant]
     Active Substance: PENICILLIN G SODIUM
     Indication: LISTERIA ENCEPHALITIS
     Dosage: 4000000 IU, EVERY 4 HOURS
     Route: 042
  3. LINEZOLID. [Suspect]
     Active Substance: LINEZOLID
     Indication: LISTERIA ENCEPHALITIS
     Dosage: 600 MG, BID
     Route: 042
  4. DEXAMETHASONE. [Concomitant]
     Active Substance: DEXAMETHASONE
     Indication: PRODUCT USED FOR UNKNOWN INDICATION
     Dosage: UNKNOWN
     Route: 042
  5. METHYLPREDNISOLONE. [Concomitant]
     Active Substance: METHYLPREDNISOLONE
     Dosage: 8 MG, OD
  6. GENTAMICIN. [Concomitant]
     Active Substance: GENTAMICIN
     Indication: LISTERIA ENCEPHALITIS
     Dosage: 80 MG, TID

REACTIONS (2)
  - Thrombocytopenia [Unknown]
  - Haematuria [Unknown]
